FAERS Safety Report 7647340-0 (Version None)
Quarter: 2011Q3

REPORT INFORMATION
  Report Type: 
  Country: None (occurrence: None)
  Receive Date: 20110711
  Receipt Date: 20110321
  Transmission Date: 20111222
  Serious: Yes (Other)
  Sender: FDA-Public Use
  Company Number: ICP201103-000352

PATIENT

DRUGS (3)
  1. REGLAN [Suspect]
     Dosage: ORAL
     Route: 048
     Dates: start: 20070701, end: 20090801
  2. METOCLOPRAMIDE HYDROCHLORIDE [Suspect]
     Dosage: ORAL
     Route: 048
     Dates: start: 20070701, end: 20090801
  3. METOCLOPRAMIDE [Suspect]
     Dosage: ORAL
     Route: 048
     Dates: start: 20070701, end: 20090801

REACTIONS (4)
  - TARDIVE DYSKINESIA [None]
  - DYSKINESIA [None]
  - EXTRAPYRAMIDAL DISORDER [None]
  - TREMOR [None]
